FAERS Safety Report 7714395-4 (Version None)
Quarter: 2011Q3

REPORT INFORMATION
  Report Type: 
  Country: None (occurrence: None)
  Receive Date: 20110829
  Receipt Date: 20110315
  Transmission Date: 20111222
  Serious: No
  Sender: FDA-Public Use
  Company Number: US-BAYER-2011-023842

PATIENT
  Age: 42 Year
  Sex: Female

DRUGS (3)
  1. MIRENA [Suspect]
     Indication: MENORRHAGIA
     Dosage: UNK
     Route: 015
     Dates: start: 20110120, end: 20110130
  2. PROVERA [Concomitant]
     Dosage: UNK
     Dates: start: 20110131
  3. PROVERA [Concomitant]
     Indication: UTERINE HAEMORRHAGE
     Dosage: UNK
     Route: 048

REACTIONS (1)
  - DEVICE EXPULSION [None]
